FAERS Safety Report 6978810-6 (Version None)
Quarter: 2010Q3

REPORT INFORMATION
  Report Type: 
  Country: None (occurrence: None)
  Receive Date: 20100913
  Receipt Date: 20100908
  Transmission Date: 20110219
  Serious: Yes (Other)
  Sender: FDA-Public Use
  Company Number: US-ALLERGAN-1010963US

PATIENT
  Age: 56 Year
  Sex: Female
  Weight: 72.562 kg

DRUGS (8)
  1. BOTOX [Suspect]
     Indication: PARAPARESIS
     Dosage: 500 UNITS, SINGLE
     Route: 030
     Dates: start: 20100727, end: 20100727
  2. BOTOX [Suspect]
     Indication: MUSCLE SPASMS
     Dosage: 500 UNITS, SINGLE
     Dates: start: 20100413, end: 20100413
  3. BOTOX [Suspect]
     Dosage: 500 UNITS, SINGLE
     Dates: start: 20091103, end: 20091103
  4. BOTOX [Suspect]
     Dosage: 400 UNITS, SINGLE
     Dates: start: 20090720, end: 20090720
  5. BOTOX [Suspect]
     Dosage: 400 UNITS, SINGLE
     Dates: start: 20090416, end: 20090416
  6. BOTOX [Suspect]
     Dosage: 300 UNITS, SINGLE
     Dates: start: 20090115, end: 20090115
  7. LOVASTATIN [Concomitant]
     Indication: BLOOD CHOLESTEROL INCREASED
     Dosage: 40 MG, QD
     Route: 048
  8. BACLOFEN [Concomitant]
     Indication: MUSCLE SPASTICITY
     Dosage: 20 MG, BID
     Route: 048

REACTIONS (4)
  - DYSPHAGIA [None]
  - DYSPHONIA [None]
  - LARYNGITIS [None]
  - MUSCULAR WEAKNESS [None]
